FAERS Safety Report 7114344-6 (Version None)
Quarter: 2010Q4

REPORT INFORMATION
  Report Type: 
  Country: None (occurrence: None)
  Receive Date: 20101119
  Receipt Date: 20101110
  Transmission Date: 20110411
  Serious: Yes (Hospitalization, Other)
  Sender: FDA-Public Use
  Company Number: US-ELI_LILLY_AND_COMPANY-US201011003451

PATIENT
  Sex: Female
  Weight: 68.934 kg

DRUGS (2)
  1. HUMALOG [Suspect]
     Indication: DIABETES MELLITUS
     Dosage: UNK, 3/D
     Dates: start: 19950101
  2. LANTUS [Concomitant]

REACTIONS (16)
  - ARTERIAL STENOSIS [None]
  - BLINDNESS [None]
  - BLOOD GLUCOSE ABNORMAL [None]
  - BLOOD GLUCOSE DECREASED [None]
  - BLOOD GLUCOSE INCREASED [None]
  - CATARACT [None]
  - CORNEAL BLEEDING [None]
  - GLYCOSYLATED HAEMOGLOBIN INCREASED [None]
  - HAEMORRHAGE [None]
  - HYPERTHYROIDISM [None]
  - HYPOGLYCAEMIC SEIZURE [None]
  - PLEURAL EFFUSION [None]
  - RETINAL HAEMORRHAGE [None]
  - TOOTH EXTRACTION [None]
  - VISUAL FIELD DEFECT [None]
  - WEIGHT DECREASED [None]
